FAERS Safety Report 5309673-2 (Version None)
Quarter: 2007Q2

REPORT INFORMATION
  Report Type: 
  Country: None (occurrence: None)
  Receive Date: 20070427
  Receipt Date: 20061127
  Transmission Date: 20071010
  Serious: No
  Sender: FDA-Public Use
  Company Number: US-GLAXOSMITHKLINE-A0624747A

PATIENT
  Age: 75 Year
  Sex: Male

DRUGS (4)
  1. DEXEDRINE [Suspect]
     Indication: NARCOLEPSY
     Dosage: 5G TWICE PER DAY
     Route: 048
     Dates: start: 20060801
  2. DEXEDRINE [Suspect]
     Dosage: 5MG THREE TIMES PER DAY
     Route: 048
     Dates: end: 20060801
  3. DEXTROAMPHETAMINE SULFATE [Suspect]
     Indication: NARCOLEPSY
     Dosage: 5MG THREE TIMES PER DAY
     Route: 048
     Dates: end: 20060901
  4. BENADRYL [Concomitant]

REACTIONS (5)
  - DRUG INEFFECTIVE [None]
  - INSOMNIA [None]
  - SOMNOLENCE [None]
  - THERAPEUTIC RESPONSE DECREASED [None]
  - THERAPEUTIC RESPONSE UNEXPECTED [None]
